FAERS Safety Report 4780853-8 (Version None)
Quarter: 2005Q3

REPORT INFORMATION
  Report Type: 
  Country: None (occurrence: None)
  Receive Date: 20050914
  Receipt Date: 20040803
  Transmission Date: 20060218
  Serious: Yes (Hospitalization)
  Sender: FDA-Public Use
  Company Number: 163-20785-04080072

PATIENT
  Age: 34 Year
  Sex: Male

DRUGS (7)
  1. THALOMID [Suspect]
     Indication: GLIOBLASTOMA MULTIFORME
     Dosage: 200 MG, DAILY, ORAL
     Route: 048
     Dates: start: 20040719, end: 20040731
  2. IRINOTECAN HCL [Suspect]
     Indication: GLIOBLASTOMA MULTIFORME
     Dosage: 221 MG, WEEKLY, INTRAVENOUS
     Route: 042
     Dates: start: 20040719, end: 20040719
  3. IRINOTECAN HCL [Suspect]
     Indication: GLIOBLASTOMA MULTIFORME
     Dosage: 221 MG, WEEKLY, INTRAVENOUS
     Route: 042
     Dates: start: 20040726, end: 20040726
  4. KEPPRA [Concomitant]
  5. COUMADIN [Concomitant]
  6. ZOFRAN [Concomitant]
  7. IMODIUM [Concomitant]

REACTIONS (2)
  - COLITIS [None]
  - ENTERITIS [None]
